FAERS Safety Report 14358525 (Version 1)
Quarter: 2018Q1

REPORT INFORMATION
  Report Type: Spontaneous
  Country: US (occurrence: US)
  Receive Date: 20180105
  Receipt Date: 20180105
  Transmission Date: 20180509
  Serious: No
  Sender: FDA-Public Use
  Company Number: US-SA-2017SA211999

PATIENT
  Age: 34 Year
  Sex: Female

DRUGS (59)
  1. NUCALA [Concomitant]
     Active Substance: MEPOLIZUMAB
     Dosage: 100 MG
     Route: 058
     Dates: start: 2016
  2. FLUOCINONKLE [Concomitant]
     Dosage: 0.05%
     Route: 065
     Dates: start: 2016
  3. VEREGEN [Concomitant]
     Active Substance: SINECATECHINS
     Dosage: 15%
     Route: 065
     Dates: start: 2012
  4. PODOPHYLLIN [Concomitant]
     Active Substance: PODOPHYLLUM RESIN
     Dosage: RESIN
     Route: 065
     Dates: start: 2013
  5. TRIAMCINOLONE [Concomitant]
     Active Substance: TRIAMCINOLONE
     Dosage: 5MG/ML 1.5ML TOTAL INTO THREE LESIONS
     Route: 065
  6. MUPIROCIN. [Concomitant]
     Active Substance: MUPIROCIN
     Route: 065
     Dates: start: 2014
  7. BACTROBAN [Concomitant]
     Active Substance: MUPIROCIN\MUPIROCIN CALCIUM
     Dosage: 2%
     Route: 065
     Dates: start: 2014
  8. OPTIVAR [Concomitant]
     Active Substance: AZELASTINE HYDROCHLORIDE
     Dosage: 0.05%
     Route: 065
     Dates: start: 2014
  9. INTRON A [Concomitant]
     Active Substance: INTERFERON ALFA-2B
     Dosage: DOSE:15 MILLION UNITS
     Route: 065
     Dates: start: 2014
  10. DOXEPIN HYDROCHLORIDE. [Concomitant]
     Active Substance: DOXEPIN HYDROCHLORIDE
     Dosage: 5%
     Route: 065
     Dates: start: 2014
  11. AQUAPHOR [Concomitant]
     Active Substance: PETROLATUM
     Dosage: 40MG/ML 1.5 ML ONE INJECTION
     Route: 065
     Dates: start: 2015
  12. RAPAMUNE [Concomitant]
     Active Substance: SIROLIMUS
     Dosage: 2 MG
     Route: 065
     Dates: start: 2015
  13. ELIDEL [Concomitant]
     Active Substance: PIMECROLIMUS
     Dosage: 1%
     Route: 065
     Dates: start: 2015
  14. LOCOID [Concomitant]
     Active Substance: HYDROCORTISONE BUTYRATE
     Route: 065
     Dates: start: 2016
  15. EUCRISA [Concomitant]
     Active Substance: CRISABOROLE
     Indication: DERMATITIS ATOPIC
     Dosage: 2 % TOPICAL
     Route: 065
     Dates: start: 2017
  16. IMIQUIMOD. [Concomitant]
     Active Substance: IMIQUIMOD
     Dosage: 0.5%
     Route: 065
     Dates: start: 2013
  17. ALDARA [Concomitant]
     Active Substance: IMIQUIMOD
     Dosage: 5%
     Route: 065
     Dates: start: 2014
  18. EFFEXOR XR [Concomitant]
     Active Substance: VENLAFAXINE HYDROCHLORIDE
     Dosage: EXTENDED RELEASE 24HR
     Route: 048
  19. BETAMETHASONE DIPROPIONATE. [Concomitant]
     Active Substance: BETAMETHASONE DIPROPIONATE
     Dosage: 0.05% ?LOTION
     Route: 065
     Dates: start: 2013
  20. GENTAMICIN. [Concomitant]
     Active Substance: GENTAMICIN
     Dosage: 0.1%
     Route: 065
     Dates: start: 2013
  21. DIFLORASONE [Concomitant]
     Active Substance: DIFLORASONE DIACETATE
     Dosage: 0.05%
     Route: 065
     Dates: start: 2014
  22. HIBICLENS [Concomitant]
     Active Substance: CHLORHEXIDINE GLUCONATE
     Route: 065
     Dates: start: 2014
  23. HYDROCORTISONE BUTYRATE. [Concomitant]
     Active Substance: HYDROCORTISONE BUTYRATE
     Route: 065
     Dates: start: 2015
  24. DESONIDE. [Concomitant]
     Active Substance: DESONIDE
     Dosage: 0.05%
     Route: 065
     Dates: start: 2012
  25. HALOBETASOL PROPIONATE. [Concomitant]
     Active Substance: HALOBETASOL PROPIONATE
     Dosage: 0.05%
     Route: 065
     Dates: start: 2012
  26. SINGULAIR [Concomitant]
     Active Substance: MONTELUKAST SODIUM
     Dosage: 10 MG
     Route: 065
     Dates: start: 2013
  27. CIMETIDINE [Concomitant]
     Active Substance: CIMETIDINE
     Dosage: 800 MG
     Route: 065
     Dates: start: 2014
  28. ECONAZOLE [Concomitant]
     Active Substance: ECONAZOLE
     Dosage: 1 %
     Route: 065
  29. PREDNISONE. [Concomitant]
     Active Substance: PREDNISONE
     Dosage: 5MG
     Route: 065
     Dates: start: 2012
  30. AZITHROMYCIN ANHYDROUS. [Concomitant]
     Active Substance: AZITHROMYCIN ANHYDROUS
     Dosage: 500 MG
     Route: 065
     Dates: start: 2013
  31. CELLCEPT [Concomitant]
     Active Substance: MYCOPHENOLATE MOFETIL\MYCOPHENOLATE MOFETIL HYDROCHLORIDE
     Dosage: 500 MG
     Route: 065
     Dates: start: 2013
  32. ZONALON [Concomitant]
     Active Substance: DOXEPIN HYDROCHLORIDE
     Dosage: 5%
     Route: 065
     Dates: start: 2013
  33. PATANOL [Concomitant]
     Active Substance: OLOPATADINE HYDROCHLORIDE
     Dosage: 0.1 %
     Route: 065
     Dates: start: 2015
  34. CARAC [Concomitant]
     Active Substance: FLUOROURACIL
     Route: 065
     Dates: start: 2014
  35. CANTHACUR [Concomitant]
     Route: 065
  36. CORDRAN [Concomitant]
     Active Substance: FLURANDRENOLIDE
     Dosage: TAPE
     Route: 065
  37. CLOBETASOL [Concomitant]
     Active Substance: CLOBETASOL
     Dosage: 0.05%
     Route: 065
     Dates: start: 2013
  38. LOCOID [Concomitant]
     Active Substance: HYDROCORTISONE BUTYRATE
     Dosage: LOCOID LIOPEREAM 0.1%
     Route: 065
     Dates: start: 2013
  39. ACULAR [Concomitant]
     Active Substance: KETOROLAC TROMETHAMINE
     Dosage: 0.5%
     Route: 065
     Dates: start: 2015
  40. LOCOID [Concomitant]
     Active Substance: HYDROCORTISONE BUTYRATE
     Dosage: 0.1%
     Route: 065
     Dates: start: 2015
  41. FINACEA [Concomitant]
     Active Substance: AZELAIC ACID
     Route: 065
  42. BENZOYL PEROXIDE/CLINDAMYCIN PHOSPHATE [Concomitant]
     Route: 065
     Dates: start: 2013
  43. GLYCERIN. [Concomitant]
     Active Substance: GLYCERIN
     Route: 065
     Dates: start: 2014
  44. DUPIXENT [Suspect]
     Active Substance: DUPILUMAB
     Indication: DERMATITIS ATOPIC
     Route: 058
     Dates: start: 201705
  45. CLOBETASOL [Concomitant]
     Active Substance: CLOBETASOL
     Indication: ECZEMA
     Dosage: 0.05 % LOTION, TOPICAL - DOSE: 1
     Route: 065
     Dates: start: 2012
  46. COLCHICINE. [Concomitant]
     Active Substance: COLCHICINE
     Dosage: 0.6 MG
     Route: 065
     Dates: start: 2013
  47. PROTOPIC [Concomitant]
     Active Substance: TACROLIMUS
     Dosage: 0.01%
     Route: 065
     Dates: start: 2013
  48. ALLEGRA [Concomitant]
     Active Substance: FEXOFENADINE HYDROCHLORIDE
     Dosage: 180 MG
     Route: 065
     Dates: start: 2013
  49. COCONUT OIL [Concomitant]
     Active Substance: COCONUT OIL
     Route: 065
     Dates: start: 2014
  50. CYPROHEPTADINE. [Concomitant]
     Active Substance: CYPROHEPTADINE
     Dosage: 4 MG
     Route: 065
     Dates: start: 2015
  51. KETOROLAC [Concomitant]
     Active Substance: KETOROLAC\KETOROLAC TROMETHAMINE
     Dosage: 0.4%
     Route: 065
     Dates: start: 2015
  52. HYDROXYZINE [Concomitant]
     Active Substance: HYDROXYZINE HYDROCHLORIDE
     Dosage: 10 MG
     Route: 065
     Dates: start: 2016
  53. INTERFERON [Concomitant]
     Active Substance: INTERFERON
     Route: 065
     Dates: start: 2014
  54. VASELINE PURE [Concomitant]
     Active Substance: PETROLATUM
     Route: 065
     Dates: start: 2014
  55. CYCLOSPORINE. [Concomitant]
     Active Substance: CYCLOSPORINE
     Dosage: 100 MG
     Route: 065
     Dates: start: 2013
  56. TOBRADEX [Concomitant]
     Active Substance: DEXAMETHASONE\TOBRAMYCIN
     Dosage: 0.3- 0.1%
     Route: 065
     Dates: start: 2014
  57. DEXAMETHASONE. [Concomitant]
     Active Substance: DEXAMETHASONE
     Dosage: 4 MG
     Route: 065
     Dates: start: 2015
  58. IMIQUIMOD. [Concomitant]
     Active Substance: IMIQUIMOD
     Dosage: 3.75%
     Route: 065
     Dates: start: 2013
  59. DOXYCYCLINE HYCLATE. [Concomitant]
     Active Substance: DOXYCYCLINE HYCLATE
     Dosage: 100 MG
     Route: 048

REACTIONS (3)
  - Ocular rosacea [Not Recovered/Not Resolved]
  - Conjunctivitis [Not Recovered/Not Resolved]
  - Dry eye [Not Recovered/Not Resolved]

NARRATIVE: CASE EVENT DATE: 201708
